FAERS Safety Report 6086858-1 (Version None)
Quarter: 2009Q1

REPORT INFORMATION
  Report Type: 
  Country: None (occurrence: None)
  Receive Date: 20090217
  Receipt Date: 20080925
  Transmission Date: 20090719
  Serious: Yes (Other)
  Sender: FDA-Public Use
  Company Number: MC200800461

PATIENT
  Age: 67 Year
  Sex: Female

DRUGS (4)
  1. ANGIOMAX [Suspect]
     Indication: PERCUTANEOUS CORONARY INTERVENTION
     Dosage: STANDARD DOSE, INTRAVENOUS
     Route: 042
     Dates: start: 20080925, end: 20080925
  2. ANGIOMAX [Suspect]
     Indication: STENT PLACEMENT
     Dosage: STANDARD DOSE, INTRAVENOUS
     Route: 042
     Dates: start: 20080925, end: 20080925
  3. ASPIRIN [Concomitant]
  4. PLAVIX [Concomitant]

REACTIONS (1)
  - CORONARY ARTERY THROMBOSIS [None]
